FAERS Safety Report 5074269-7 (Version None)
Quarter: 2006Q3

REPORT INFORMATION
  Report Type: 
  Country: None (occurrence: None)
  Receive Date: 20060714
  Receipt Date: 20060317
  Transmission Date: 20061208
  Serious: No
  Sender: FDA-Public Use
  Company Number: 2006SP000943

PATIENT
  Age: 62 Year
  Sex: Female
  Weight: 105.6881 kg

DRUGS (9)
  1. LUNESTA [Suspect]
     Indication: INSOMNIA
     Dosage: 3 MG;PRN;ORAL
     Route: 048
     Dates: start: 20060223, end: 20060316
  2. SYNTHROID [Concomitant]
  3. ESTROGENS CONJUGATED [Concomitant]
  4. ATENOLOL [Concomitant]
  5. HYDROCHLOROTHIAZIDE [Concomitant]
  6. AMITRIPTYLINE HCL [Concomitant]
  7. TYLENOL (CAPLET) [Concomitant]
  8. IBUPROFEN [Concomitant]
  9. AMBIEN [Concomitant]

REACTIONS (1)
  - DYSGEUSIA [None]
